FAERS Safety Report 17718282 (Version 2)
Quarter: 2020Q2

REPORT INFORMATION
  Report Type: Spontaneous
  Country: FR (occurrence: FR)
  Receive Date: 20200428
  Receipt Date: 20200515
  Transmission Date: 20200714
  Serious: Yes (Other)
  Sender: FDA-Public Use
  Company Number: FR-PFIZER INC-2020169204

PATIENT
  Age: 62 Year
  Sex: Male
  Weight: 73 kg

DRUGS (6)
  1. OXYNORMORO [Suspect]
     Active Substance: OXYCODONE HYDROCHLORIDE
     Indication: PAIN
     Dosage: 1 DF, AS NEEDED
     Route: 048
  2. QUTENZA [Suspect]
     Active Substance: CAPSAICIN
     Indication: PAIN
     Dosage: UNK
     Route: 003
  3. LYRICA [Suspect]
     Active Substance: PREGABALIN
     Indication: PAIN
     Dosage: 1 DF, 1X/DAY
     Route: 048
  4. DUROGESIC [Suspect]
     Active Substance: FENTANYL
     Indication: PAIN
     Dosage: 12.5 UG EVERY HOUR
     Route: 062
  5. PRIMPERAN [Suspect]
     Active Substance: METOCLOPRAMIDE HYDROCHLORIDE
     Indication: NAUSEA
     Dosage: UNK
     Route: 048
  6. SUTENT [Suspect]
     Active Substance: SUNITINIB MALATE
     Indication: RENAL CANCER
     Dosage: 2 DF, CYCLIC (1X/DAY 2 WEEKS OUT OF 3)
     Route: 048
     Dates: start: 20180524, end: 20200226

REACTIONS (2)
  - Hypothyroidism [Recovering/Resolving]
  - Blood thyroid stimulating hormone increased [Recovering/Resolving]

NARRATIVE: CASE EVENT DATE: 20190801
